FAERS Safety Report 23456438 (Version 2)
Quarter: 2024Q1

REPORT INFORMATION
  Report Type: Spontaneous
  Country: US (occurrence: US)
  Receive Date: 20240130
  Receipt Date: 20240315
  Transmission Date: 20240409
  Serious: No
  Sender: FDA-Public Use
  Company Number: US-002147023-NVSC2024US020107

PATIENT
  Sex: Female

DRUGS (1)
  1. COSENTYX [Suspect]
     Active Substance: SECUKINUMAB
     Indication: Psoriasis
     Dosage: 150 MG, QMO
     Route: 065

REACTIONS (7)
  - Arthritis [Unknown]
  - Haemorrhage [Unknown]
  - Alopecia [Unknown]
  - Neck injury [Unknown]
  - Stress [Unknown]
  - Pain [Unknown]
  - Drug ineffective [Unknown]
